FAERS Safety Report 9705395 (Version 2)
Quarter: 2014Q1

REPORT INFORMATION
  Report Type: Spontaneous
  Country: TW (occurrence: TW)
  Receive Date: 20131122
  Receipt Date: 20140129
  Transmission Date: 20141002
  Serious: Yes (Hospitalization)
  Sender: FDA-Public Use
  Company Number: TW-ABBVIE-13P-153-1170067-00

PATIENT
  Age: 20 Year
  Sex: Male
  Weight: 46 kg

DRUGS (1)
  1. HUMIRA [Suspect]
     Indication: CROHN^S DISEASE
     Route: 058
     Dates: start: 20130207, end: 20130822

REACTIONS (4)
  - Small intestinal stenosis [Recovered/Resolved]
  - Abdominal pain [Recovered/Resolved]
  - Ascites [Recovered/Resolved]
  - Small intestine ulcer [Recovered/Resolved]
